FAERS Safety Report 6586955 (Version 3)
Quarter: 2013Q1

REPORT INFORMATION
  Report Type: Report from Study
  Country: NZ (occurrence: NZ)
  Receive Date: 20080318
  Receipt Date: 20130215
  Transmission Date: 20140127
  Serious: Yes (Death, Other)
  Sender: FDA-Public Use
  Company Number: PHHY2008NZ03176

PATIENT
  Age: 20 Year
  Sex: Female
  Weight: 93 kg

DRUGS (5)
  1. CLOZARIL [Suspect]
     Indication: SCHIZOPHRENIA
     Dosage: 600 MG, QD
     Route: 048
     Dates: start: 20041221
  2. CLOZARIL [Suspect]
     Dosage: 200 MG, QD
     Dates: start: 20080305, end: 20080305
  3. CLOZARIL [Suspect]
     Dosage: 400 MG, QD
     Route: 048
     Dates: start: 20080306
  4. RISPERIDONE [Concomitant]
     Dosage: 2 MG, QD
  5. PAROXETINE [Concomitant]
     Dosage: 20 MG, QD

REACTIONS (8)
  - Death [Fatal]
  - Orthostatic hypotension [Unknown]
  - Tachycardia [Unknown]
  - Malaise [Unknown]
  - Malignant melanoma [Unknown]
  - Antipsychotic drug level above therapeutic [Unknown]
  - Vomiting [Unknown]
  - Decreased appetite [Unknown]
